FAERS Safety Report 7586719-2 (Version None)
Quarter: 2011Q2

REPORT INFORMATION
  Report Type: 
  Country: None (occurrence: None)
  Receive Date: 20110603
  Receipt Date: 20110217
  Transmission Date: 20111010
  Serious: Yes (Other)
  Sender: FDA-Public Use
  Company Number: 2011SP007587

PATIENT
  Age: 37 Year
  Sex: Female
  Weight: 136.9863 kg

DRUGS (5)
  1. XANAX [Concomitant]
  2. PRISTIG [Concomitant]
  3. SAPHRIS [Suspect]
     Indication: BIPOLAR I DISORDER
     Dosage: HS;SL
     Route: 060
     Dates: start: 20110124, end: 20110201
  4. NEURONTIN [Concomitant]
  5. PROZAC [Concomitant]

REACTIONS (6)
  - HYPERSENSITIVITY [None]
  - INAPPROPRIATE SCHEDULE OF DRUG ADMINISTRATION [None]
  - SWELLING FACE [None]
  - PRURITUS [None]
  - OEDEMA PERIPHERAL [None]
  - DYSPNOEA [None]
